FAERS Safety Report 5963434-X (Version None)
Quarter: 2008Q4

REPORT INFORMATION
  Report Type: 
  Country: None (occurrence: None)
  Receive Date: 20081124
  Receipt Date: 20081111
  Transmission Date: 20090506
  Serious: Yes (Other)
  Sender: FDA-Public Use
  Company Number: GB-NOVOPROD-281197

PATIENT
  Age: 61 Year
  Sex: Male
  Weight: 108 kg

DRUGS (5)
  1. LEVEMIR [Suspect]
     Indication: DIABETES MELLITUS
     Dosage: 6 IU, QD
     Route: 058
     Dates: start: 20080910, end: 20080917
  2. ASPIRIN [Concomitant]
     Dosage: 75 MG, QD
     Route: 048
     Dates: start: 20050701
  3. ATORVASTATIN CALCIUM [Concomitant]
     Route: 048
     Dates: start: 20080701
  4. GLICLAZIDE [Concomitant]
     Dosage: 32 IU, QD
     Route: 048
     Dates: start: 20060401
  5. METFORMIN HCL [Concomitant]
     Dosage: 2 G, QD
     Route: 048
     Dates: start: 20050701

REACTIONS (2)
  - ABDOMINAL PAIN UPPER [None]
  - HYPERHIDROSIS [None]
